FAERS Safety Report 7127850-5 (Version None)
Quarter: 2010Q4

REPORT INFORMATION
  Report Type: 
  Country: None (occurrence: None)
  Receive Date: 20101029
  Receipt Date: 20100720
  Transmission Date: 20110411
  Serious: No
  Sender: FDA-Public Use
  Company Number: DK-003282

PATIENT
  Sex: Male

DRUGS (1)
  1. FIRMAGON [Suspect]
     Indication: PROSTATE CANCER
     Dosage: SUBCUTANEOUS
     Route: 058

REACTIONS (2)
  - HOT FLUSH [None]
  - INJECTION SITE ERYTHEMA [None]
